FAERS Safety Report 12868374 (Version 1)
Quarter: 2016Q4

REPORT INFORMATION
  Report Type: Spontaneous
  Country: US (occurrence: US)
  Receive Date: 20161020
  Receipt Date: 20161020
  Transmission Date: 20170207
  Serious: No
  Sender: FDA-Public Use
  Company Number: US-ROCHE-1779351

PATIENT

DRUGS (2)
  1. PULMOZYME [Suspect]
     Active Substance: DORNASE ALFA
     Indication: PULMONARY THROMBOSIS
     Dosage: 10 MG OF ALTEPLASE WAS MIXED WITH 5 MG OF DORNASE ALFA IN 55 ML OF NORMAL SALINE (NS)
     Route: 034
  2. ACTIVASE [Suspect]
     Active Substance: ALTEPLASE
     Indication: PULMONARY THROMBOSIS
     Dosage: 10 MG OF ALTEPLASE WAS MIXED WITH 5 MG OF DORNASE ALFA IN 55 ML OF NORMAL SALINE (NS)
     Route: 034

REACTIONS (3)
  - No adverse event [Unknown]
  - Off label use [Unknown]
  - Circumstance or information capable of leading to medication error [Unknown]
